FAERS Safety Report 17017488 (Version 4)
Quarter: 2019Q4

REPORT INFORMATION
  Report Type: Spontaneous
  Country: JP (occurrence: JP)
  Receive Date: 20191111
  Receipt Date: 20191210
  Transmission Date: 20200122
  Serious: Yes (Other)
  Sender: FDA-Public Use
  Company Number: JP-GILEAD-2019-0436687

PATIENT
  Age: 67 Year
  Sex: Female
  Weight: 55.6 kg

DRUGS (1)
  1. VEMLIDY [Suspect]
     Active Substance: TENOFOVIR ALAFENAMIDE FUMARATE
     Indication: HEPATITIS B
     Dosage: 25 MG, QD
     Route: 048

REACTIONS (1)
  - Breast cancer [Unknown]

NARRATIVE: CASE EVENT DATE: 20190617
